FAERS Safety Report 20189461 (Version 2)
Quarter: 2022Q1

REPORT INFORMATION
  Report Type: Report from Study
  Country: BE (occurrence: BE)
  Receive Date: 20211215
  Receipt Date: 20220124
  Transmission Date: 20220423
  Serious: Yes (Hospitalization, Other)
  Sender: FDA-Public Use
  Company Number: BE-ROCHE-2943249

PATIENT
  Age: 76 Year
  Sex: Male
  Weight: 91.8 kg

DRUGS (32)
  1. CARBOPLATIN [Suspect]
     Active Substance: CARBOPLATIN
     Indication: Small cell lung cancer extensive stage
     Route: 065
     Dates: start: 20210722
  2. ATEZOLIZUMAB [Suspect]
     Active Substance: ATEZOLIZUMAB
     Indication: Small cell lung cancer extensive stage
     Dosage: 1200 MG (RECEIVED BEFORE SIGNING THE INFORMED CONSENT)
     Route: 041
     Dates: start: 20210630
  3. ATEZOLIZUMAB [Suspect]
     Active Substance: ATEZOLIZUMAB
     Dosage: 1200 MG
     Route: 041
     Dates: start: 20210722
  4. ETOPOSIDE [Suspect]
     Active Substance: ETOPOSIDE
     Indication: Small cell lung cancer extensive stage
     Route: 065
     Dates: start: 20210722
  5. JARDIANCE [Concomitant]
     Active Substance: EMPAGLIFLOZIN
     Dosage: UNK
     Dates: start: 20210627
  6. METFORMIN [Concomitant]
     Active Substance: METFORMIN HYDROCHLORIDE
     Dosage: UNK, 3X/DAY
     Dates: start: 20210810
  7. METFORMIN [Concomitant]
     Active Substance: METFORMIN HYDROCHLORIDE
     Dosage: UNK
     Dates: start: 20210712, end: 20210712
  8. FOLIC ACID [Concomitant]
     Active Substance: FOLIC ACID
     Dosage: UNK
     Dates: start: 20210629
  9. SPIRONOLACTONE [Concomitant]
     Active Substance: SPIRONOLACTONE
     Dosage: UNK
     Dates: start: 20210701
  10. ENOXAPARIN SODIUM [Concomitant]
     Active Substance: ENOXAPARIN SODIUM
     Dosage: UNK
     Dates: start: 20210624, end: 20210703
  11. ENOXAPARIN SODIUM [Concomitant]
     Active Substance: ENOXAPARIN SODIUM
     Dosage: UNK
     Dates: start: 20210704, end: 20210705
  12. ENOXAPARIN SODIUM [Concomitant]
     Active Substance: ENOXAPARIN SODIUM
     Dosage: UNK
     Dates: start: 20210707, end: 20210712
  13. STEOVIT FORTE [Concomitant]
     Dosage: UNK UNK, 1X/DAY
     Dates: start: 20210618
  14. ACTRAPID [Concomitant]
     Active Substance: INSULIN HUMAN
     Dosage: 0.25 UNK
     Dates: start: 20210618
  15. ATROVENT [Concomitant]
     Active Substance: IPRATROPIUM BROMIDE
     Dosage: UNK
     Dates: start: 20210623
  16. MOVICOL [Concomitant]
     Active Substance: POLYETHYLENE GLYCOL 3350\POTASSIUM CHLORIDE\SODIUM BICARBONATE\SODIUM CHLORIDE
     Dosage: UNK
     Dates: start: 20210620, end: 20210708
  17. BUMETANIDE [Concomitant]
     Active Substance: BUMETANIDE
     Dosage: UNK
     Dates: start: 20210701, end: 20210706
  18. BUMETANIDE [Concomitant]
     Active Substance: BUMETANIDE
     Dosage: UNK
     Dates: start: 20210707, end: 20210715
  19. XANAX [Concomitant]
     Active Substance: ALPRAZOLAM
     Indication: Sedation
     Dosage: UNK, 1X/DAY
     Dates: start: 202108
  20. LIPEGFILGRASTIM [Concomitant]
     Active Substance: LIPEGFILGRASTIM
     Dosage: UNK, 1X/DAY
     Dates: start: 20210814, end: 20210814
  21. FENTANYL [Concomitant]
     Active Substance: FENTANYL
     Indication: Sedation
     Dosage: UNK, 1X/DAY
     Dates: start: 20210808
  22. NETUPITANT [Concomitant]
     Active Substance: NETUPITANT
     Dosage: 300 MG
     Dates: start: 20210630, end: 20210630
  23. NETUPITANT [Concomitant]
     Active Substance: NETUPITANT
     Dosage: 300 MG
     Dates: start: 20210722, end: 20210722
  24. DEXAMETHASONE SODIUM PHOSPHATE/HYDROXOCOBALAMIN/PIROXICAM/PYRIDOXINE H [Concomitant]
     Dosage: 10 MG
     Dates: start: 20210630, end: 20210630
  25. DEXAMETHASONE SODIUM PHOSPHATE/HYDROXOCOBALAMIN/PIROXICAM/PYRIDOXINE H [Concomitant]
     Dosage: 10 UNK
     Dates: start: 20210722, end: 20210722
  26. ACETYLCYSTEINE [Concomitant]
     Active Substance: ACETYLCYSTEINE
     Dosage: UNK
     Dates: start: 20210623
  27. PALONOSETRON [Concomitant]
     Active Substance: PALONOSETRON
     Dosage: 0.5 MG
     Dates: start: 20210722, end: 20210722
  28. PALONOSETRON [Concomitant]
     Active Substance: PALONOSETRON
     Dosage: 0.5 MG
     Dates: start: 20210630, end: 20210630
  29. OXYGEN [Concomitant]
     Active Substance: OXYGEN
     Dosage: UNK
     Dates: start: 202106
  30. STEROPOTASSIUM [Concomitant]
     Indication: Adverse event
     Dosage: UNK
     Dates: start: 20210707, end: 20210707
  31. MORPHINE [Concomitant]
     Active Substance: MORPHINE
     Indication: Adverse event
     Dosage: UNK
     Dates: start: 20210705, end: 20210705
  32. KALIUM [POTASSIUM CHLORIDE] [Concomitant]

REACTIONS (22)
  - Thrombocytopenia [Recovered/Resolved]
  - Epistaxis [Recovered/Resolved]
  - Hypokalaemia [Recovered/Resolved]
  - Asthenia [Recovered/Resolved]
  - Blood bilirubin increased [Recovered/Resolved]
  - Oedema peripheral [Recovered/Resolved]
  - Decreased appetite [Not Recovered/Not Resolved]
  - Inflammation [Recovered/Resolved]
  - Condition aggravated [Recovered/Resolved]
  - Diarrhoea [Recovered/Resolved]
  - Weight decreased [Recovered/Resolved]
  - Decreased appetite [Not Recovered/Not Resolved]
  - Aspartate aminotransferase increased [Recovered/Resolved]
  - Hypomagnesaemia [Recovered/Resolved]
  - Nausea [Recovered/Resolved]
  - Productive cough [Recovered/Resolved]
  - Blood alkaline phosphatase increased [Recovered/Resolved]
  - Haemoptysis [Recovered/Resolved]
  - Haematuria [Recovered/Resolved]
  - Abdominal pain [Recovered/Resolved]
  - Chest pain [Recovered/Resolved]
  - C-reactive protein increased [Recovered/Resolved]

NARRATIVE: CASE EVENT DATE: 20210701
